FAERS Safety Report 24337114 (Version 2)
Quarter: 2024Q4

REPORT INFORMATION
  Report Type: Spontaneous
  Country: DE (occurrence: DE)
  Receive Date: 20240919
  Receipt Date: 20241122
  Transmission Date: 20250114
  Serious: Yes (Hospitalization)
  Sender: SAMSUNG BIOEPIS
  Company Number: DE-SAMSUNG BIOEPIS-SB-2024-27547

PATIENT
  Age: 59 Year
  Sex: Male
  Weight: 72 kg

DRUGS (7)
  1. TRASTUZUMAB [Suspect]
     Active Substance: TRASTUZUMAB
     Indication: Oesophageal adenocarcinoma
     Dosage: D1: 8MG/KG;
     Route: 042
     Dates: start: 20240327
  2. TRASTUZUMAB [Suspect]
     Active Substance: TRASTUZUMAB
     Dosage: 6MG/KG IV D22/D43 PRE- AND POST OP, AFTERWARDS 6MG/KG IV D1 Q3W. DOSE GIVEN BEFORE ONSET OF EVENT WA
     Route: 042
  3. PEMBROLIZUMAB [Suspect]
     Active Substance: PEMBROLIZUMAB
     Indication: Bladder adenocarcinoma stage II
     Dosage: 200 MG FLAT DOSE, D1/D22/D43 PRE AND POST OP, AFTERWARDS Q3W. LAST DOSE BEFORE EVENT 200MG.
     Route: 042
     Dates: start: 20240327
  4. LEUCOVORIN [Suspect]
     Active Substance: LEUCOVORIN\LEUCOVORIN CALCIUM
     Indication: Oesophageal adenocarcinoma
     Dosage: 200MG/M2 D1/D15/D29/D43 PRE AND POST OP;
     Route: 042
     Dates: start: 20240327
  5. OXALIPLATIN [Suspect]
     Active Substance: OXALIPLATIN
     Indication: Oesophageal adenocarcinoma
     Dosage: 85MG/M2 D1/D15/D29 AND D43 PRE AND POST OP;
     Route: 042
     Dates: start: 20240327
  6. FLUOROURACIL [Suspect]
     Active Substance: FLUOROURACIL
     Indication: Endometrial adenocarcinoma
     Dosage: 2600MG/M2 D1/D15/D29 AND D43 PRE AND POST OP;
     Route: 042
     Dates: start: 20240327
  7. DOCETAXEL [Suspect]
     Active Substance: DOCETAXEL
     Indication: Oesophageal adenocarcinoma
     Dosage: 50MG/M2 D1/D15/D29 AND D43 PRE AND POST OP;
     Route: 042
     Dates: start: 20240327

REACTIONS (5)
  - Dysphagia [Recovered/Resolved]
  - Vomiting [Recovered/Resolved]
  - Nausea [Recovered/Resolved]
  - Pyloric stenosis [Recovered/Resolved]
  - Off label use [Unknown]

NARRATIVE: CASE EVENT DATE: 20240905
